FAERS Safety Report 14993574 (Version 3)
Quarter: 2019Q2

REPORT INFORMATION
  Report Type: Spontaneous
  Country: ES (occurrence: ES)
  Receive Date: 20180611
  Receipt Date: 20190625
  Transmission Date: 20190711
  Serious: Yes (Other)
  Sender: FDA-Public Use
  Company Number: ES-AUROBINDO-AUR-APL-2018-030928

PATIENT
  Age: 6 Year
  Sex: Male

DRUGS (6)
  1. LINEZOLID. [Suspect]
     Active Substance: LINEZOLID
     Indication: LIVER DISORDER
     Dosage: 10 MILLIGRAM/KILOGRAM, DAILY
     Route: 065
  2. ISONIAZID. [Concomitant]
     Active Substance: ISONIAZID
     Indication: DRUG-INDUCED LIVER INJURY
  3. ISONIAZID. [Concomitant]
     Active Substance: ISONIAZID
     Indication: LIVER DISORDER
     Dosage: UNK
     Route: 065
  4. LEVOFLOXACIN. [Concomitant]
     Active Substance: LEVOFLOXACIN
     Indication: DRUG-INDUCED LIVER INJURY
     Dosage: UNK
     Route: 065
  5. LINEZOLID. [Suspect]
     Active Substance: LINEZOLID
     Indication: DRUG-INDUCED LIVER INJURY
     Dosage: 10 MILLIGRAM/KILOGRAM, TWO TIMES A DAY
     Route: 065
  6. LEVOFLOXACIN. [Concomitant]
     Active Substance: LEVOFLOXACIN
     Indication: LIVER DISORDER

REACTIONS (2)
  - Gastrointestinal disorder [Unknown]
  - Diarrhoea [Unknown]
